FAERS Safety Report 17217938 (Version 1)
Quarter: 2019Q4

REPORT INFORMATION
  Report Type: Spontaneous
  Country: US (occurrence: US)
  Receive Date: 20191231
  Receipt Date: 20191231
  Transmission Date: 20200122
  Serious: No
  Sender: FDA-Public Use
  Company Number: US-TEVA-2019-US-1161973

PATIENT

DRUGS (1)
  1. BISOPROLOL [Suspect]
     Active Substance: BISOPROLOL
     Route: 065

REACTIONS (5)
  - Heart rate increased [Unknown]
  - Dizziness [Unknown]
  - Visual impairment [Unknown]
  - Headache [Unknown]
  - Dyspnoea [Unknown]
